FAERS Safety Report 5005851-0 (Version None)
Quarter: 2006Q2

REPORT INFORMATION
  Report Type: 
  Country: None (occurrence: None)
  Receive Date: 20060517
  Receipt Date: 20060517
  Transmission Date: 20061013
  Serious: Yes (Hospitalization)
  Sender: FDA-Public Use
  Company Number: None

PATIENT
  Age: 67 Year
  Sex: Female
  Weight: 60.8274 kg

DRUGS (1)
  1. GEMCITABINE [Suspect]
     Indication: BREAST CANCER METASTATIC
     Dosage: 750MG/M2 D1,8,15  Q28D  IV
     Route: 042
     Dates: start: 20050616, end: 20051125

REACTIONS (3)
  - HYPOALBUMINAEMIA [None]
  - OEDEMA [None]
  - WEIGHT INCREASED [None]
